FAERS Safety Report 25914041 (Version 1)
Quarter: 2025Q4

REPORT INFORMATION
  Report Type: Report from Study
  Country: US (occurrence: US)
  Receive Date: 20251013
  Receipt Date: 20251013
  Transmission Date: 20260118
  Serious: Yes (Other)
  Sender: ABBVIE
  Company Number: US-ABBVIE-6499116

PATIENT
  Age: 56 Year
  Sex: Male

DRUGS (1)
  1. HUMIRA [Suspect]
     Active Substance: ADALIMUMAB
     Indication: Colitis ulcerative
     Route: 058
     Dates: start: 20210722

REACTIONS (6)
  - Hepatic cirrhosis [Unknown]
  - Disorientation [Unknown]
  - Abdominal pain upper [Unknown]
  - Gait inability [Unknown]
  - Illness [Recovered/Resolved with Sequelae]
  - Illness [Recovered/Resolved with Sequelae]

NARRATIVE: CASE EVENT DATE: 20240801
